FAERS Safety Report 21320193 (Version 1)
Quarter: 2022Q3

REPORT INFORMATION
  Report Type: Spontaneous
  Country: US (occurrence: US)
  Receive Date: 20220911
  Receipt Date: 20220911
  Transmission Date: 20221026
  Serious: No
  Sender: FDA-Public Use
  Company Number: US-SA-SAC20220908000453

PATIENT
  Age: 73 Year
  Sex: Female

DRUGS (3)
  1. KEVZARA [Suspect]
     Active Substance: SARILUMAB
     Indication: Rheumatoid arthritis
     Dosage: 200 MG, QOW
     Route: 058
     Dates: start: 202206
  2. KEVZARA [Suspect]
     Active Substance: SARILUMAB
     Indication: Connective tissue disorder
  3. KEVZARA [Suspect]
     Active Substance: SARILUMAB
     Indication: Polymyositis

REACTIONS (2)
  - Dry skin [Unknown]
  - Product use in unapproved indication [Unknown]
